FAERS Safety Report 9703371 (Version 2)
Quarter: 2013Q4

REPORT INFORMATION
  Report Type: Spontaneous
  Country: BR (occurrence: BR)
  Receive Date: 20131122
  Receipt Date: 20131122
  Transmission Date: 20140711
  Serious: Yes (Other)
  Sender: FDA-Public Use
  Company Number: BR-ASTRAZENECA-2011SE63280

PATIENT
  Age: 61 Year
  Sex: Female

DRUGS (4)
  1. ATACAND [Suspect]
     Indication: HYPERTENSION
     Route: 048
     Dates: end: 2010
  2. ATACAND HCT [Suspect]
     Indication: HYPERTENSION
     Dosage: 16/12.5 MILLIGRAMS, ONCE DAILY.
     Route: 048
     Dates: start: 2010
  3. XALACOM [Concomitant]
     Indication: INTRAOCULAR PRESSURE INCREASED
     Route: 031
  4. UNKNOWN [Concomitant]
     Indication: HORMONE REPLACEMENT THERAPY
     Route: 048

REACTIONS (2)
  - Conjunctival haemorrhage [Recovered/Resolved]
  - Blood pressure inadequately controlled [Recovered/Resolved]
